FAERS Safety Report 22935401 (Version 2)
Quarter: 2024Q2

REPORT INFORMATION
  Report Type: Spontaneous
  Country: NL (occurrence: NL)
  Receive Date: 20230912
  Receipt Date: 20240515
  Transmission Date: 20240716
  Serious: Yes (Hospitalization)
  Sender: FDA-Public Use
  Company Number: NL-LRB-00881777

PATIENT
  Sex: Female
  Weight: 57.2 kg

DRUGS (8)
  1. ESOMEPRAZOLE [Suspect]
     Active Substance: ESOMEPRAZOLE
     Indication: Barrett^s oesophagus
     Dosage: 40 MILLIGRAM, BID, 2DD 1 TABLET
     Route: 065
     Dates: start: 20160229, end: 20230503
  2. OMEPRAZOLE [Suspect]
     Active Substance: DONEPEZIL HYDROCHLORIDE\OMEPRAZOLE\OMEPRAZOLE MAGNESIUM
     Indication: Barrett^s oesophagus
     Dosage: 1 DD 1 TABLET
     Route: 065
     Dates: start: 20230424, end: 20230510
  3. LOSARTAN [Concomitant]
     Active Substance: LOSARTAN
     Indication: Product used for unknown indication
     Dosage: 50 MG TABLET, 100 MG, ORAAL, 1DD
     Route: 065
  4. NITRAZEPAM [Concomitant]
     Active Substance: NITRAZEPAM
     Indication: Product used for unknown indication
     Dosage: 5 MG TABLET, 5 MG, ORAAL, 1DD ZN AN
     Route: 065
  5. ATORVASTATIN [Concomitant]
     Active Substance: ATORVASTATIN
     Indication: Product used for unknown indication
     Dosage: TABLET, 40 MG (MILLIGRAM)
     Route: 065
  6. ASPIRIN [Concomitant]
     Active Substance: ASPIRIN
     Indication: Product used for unknown indication
     Dosage: TABLET, 80 MG (MILLIGRAM)
     Route: 065
  7. MULTIVITAMINEN/ MINERALEN TABLET / DAGRAVIT TOTAAL 30 DRAGEE [Concomitant]
     Indication: Product used for unknown indication
     Dosage: TABLET
     Route: 065
  8. CALCIUMCARBONAAT KAUWTABLET [Concomitant]
     Indication: Product used for unknown indication
     Dosage: CHEWABLE TABLET, 2,5 G (GRAM)
     Route: 065

REACTIONS (2)
  - Hypomagnesaemia [Recovered/Resolved]
  - Hypokalaemia [Recovered/Resolved]
